FAERS Safety Report 8333627-5 (Version None)
Quarter: 2012Q2

REPORT INFORMATION
  Report Type: 
  Country: None (occurrence: None)
  Receive Date: 20120503
  Receipt Date: 20120430
  Transmission Date: 20120825
  Serious: Yes (Other)
  Sender: FDA-Public Use
  Company Number: US-PURDUE-USA-2012-0086159

PATIENT
  Sex: Female

DRUGS (2)
  1. PREDNISONE [Concomitant]
     Indication: PRODUCT USED FOR UNKNOWN INDICATION
     Dosage: UNK
  2. SENOKOT [Suspect]
     Indication: CONSTIPATION
     Dosage: 1 TABLET, HS
     Route: 048
     Dates: start: 20120201

REACTIONS (3)
  - PHARYNGEAL OEDEMA [None]
  - SWELLING FACE [None]
  - TONGUE OEDEMA [None]
